FAERS Safety Report 5477901-9 (Version None)
Quarter: 2007Q4

REPORT INFORMATION
  Report Type: 
  Country: None (occurrence: None)
  Receive Date: 20071005
  Receipt Date: 20071002
  Transmission Date: 20080405
  Serious: Yes (Death)
  Sender: FDA-Public Use
  Company Number: PHBS2007AU16445

PATIENT
  Age: 67 Year
  Sex: Female

DRUGS (3)
  1. SIROLIMUS [Suspect]
     Indication: RENAL TRANSPLANT
  2. PREDNISOLONE [Suspect]
     Indication: RENAL TRANSPLANT
  3. CICLOSPORIN [Suspect]
     Indication: RENAL TRANSPLANT

REACTIONS (7)
  - AXILLARY MASS [None]
  - BLOOD CREATININE INCREASED [None]
  - HEPATIC LESION [None]
  - LIVER FUNCTION TEST ABNORMAL [None]
  - METASTASES TO BONE MARROW [None]
  - NEUROENDOCRINE CARCINOMA OF THE SKIN [None]
  - OEDEMA PERIPHERAL [None]
